FAERS Safety Report 25422638 (Version 2)
Quarter: 2025Q3

REPORT INFORMATION
  Report Type: Spontaneous
  Country: US (occurrence: US)
  Receive Date: 20250611
  Receipt Date: 20250916
  Transmission Date: 20251020
  Serious: No
  Sender: BRAEBURN PHARMACEUTICALS
  Company Number: US-BRAEBURN-US-BRA-24-000734

PATIENT
  Sex: Male
  Weight: 101.59 kg

DRUGS (3)
  1. BRIXADI [Suspect]
     Active Substance: BUPRENORPHINE
     Indication: Drug dependence
     Route: 058
  2. BRIXADI [Suspect]
     Active Substance: BUPRENORPHINE
     Route: 058
  3. BRIXADI [Suspect]
     Active Substance: BUPRENORPHINE
     Route: 058

REACTIONS (3)
  - Orthopnoea [Unknown]
  - Injection site pain [Unknown]
  - Intentional product use issue [Unknown]

NARRATIVE: CASE EVENT DATE: 20240101
